FAERS Safety Report 17518967 (Version 1)
Quarter: 2020Q1

REPORT INFORMATION
  Report Type: Spontaneous
  Country: US (occurrence: US)
  Receive Date: 20200309
  Receipt Date: 20200309
  Transmission Date: 20200409
  Serious: Yes (Hospitalization, Other)
  Sender: FDA-Public Use
  Company Number: US-SHIRE-US202008101

PATIENT
  Age: 10 Year
  Sex: Female

DRUGS (4)
  1. GAMMAGARD LIQUID [Suspect]
     Active Substance: HUMAN IMMUNOGLOBULIN G
     Indication: PULMONARY VASCULITIS
     Dosage: UNK UNK, 1X A MONTH
     Route: 065
     Dates: start: 201610
  2. RITUXIMAB. [Concomitant]
     Active Substance: RITUXIMAB
     Indication: PRODUCT USED FOR UNKNOWN INDICATION
  3. GAMMAGARD LIQUID [Suspect]
     Active Substance: HUMAN IMMUNOGLOBULIN G
     Dosage: UNK
     Route: 065
     Dates: start: 201611
  4. GAMMAGARD LIQUID [Suspect]
     Active Substance: HUMAN IMMUNOGLOBULIN G
     Dosage: UNK
     Route: 065
     Dates: start: 202001

REACTIONS (7)
  - Pulmonary haemorrhage [Unknown]
  - Nasopharyngitis [Unknown]
  - Product dose omission [Unknown]
  - Hypoxia [Unknown]
  - Intentional product use issue [Unknown]
  - Capillary fragility [Unknown]
  - Product availability issue [Unknown]

NARRATIVE: CASE EVENT DATE: 201908
